FAERS Safety Report 21362335 (Version 1)
Quarter: 2022Q3

REPORT INFORMATION
  Report Type: Spontaneous
  Country: US (occurrence: US)
  Receive Date: 20220922
  Receipt Date: 20220922
  Transmission Date: 20221026
  Serious: Yes (Other)
  Sender: FDA-Public Use
  Company Number: US-AUROBINDO-AUR-APL-2022-037425

PATIENT
  Age: 32 Year
  Sex: Female

DRUGS (4)
  1. AMIODARONE HYDROCHLORIDE [Suspect]
     Active Substance: AMIODARONE HYDROCHLORIDE
     Indication: Ventricular arrhythmia
     Dosage: UNK
     Route: 065
  2. METOPROLOL [Concomitant]
     Active Substance: METOPROLOL
     Indication: Ventricular arrhythmia
     Dosage: UNK
     Route: 065
  3. SOTALOL [Concomitant]
     Active Substance: SOTALOL
     Indication: Ventricular fibrillation
     Dosage: UNK
     Route: 065
  4. MEXILETINE [Concomitant]
     Active Substance: MEXILETINE
     Indication: Ventricular fibrillation
     Dosage: UNK
     Route: 065

REACTIONS (1)
  - Treatment failure [Unknown]
